FAERS Safety Report 12648174 (Version 2)
Quarter: 2016Q3

REPORT INFORMATION
  Report Type: Spontaneous
  Country: CN (occurrence: CN)
  Receive Date: 20160812
  Receipt Date: 20160824
  Transmission Date: 20161109
  Serious: Yes (Other)
  Sender: FDA-Public Use
  Company Number: CN-NOVOPROD-504693

PATIENT
  Age: 39 Year
  Sex: Male
  Weight: 90 kg

DRUGS (2)
  1. NOVORAPID [Suspect]
     Active Substance: INSULIN ASPART
     Dosage: 15 U, TID
     Route: 058
     Dates: end: 20160801
  2. NOVORAPID [Suspect]
     Active Substance: INSULIN ASPART
     Indication: TYPE 2 DIABETES MELLITUS
     Dosage: 10 U, TID
     Route: 058
     Dates: start: 20160716, end: 20160801

REACTIONS (3)
  - Coma [Unknown]
  - Retinal haemorrhage [Not Recovered/Not Resolved]
  - Blood glucose increased [Not Recovered/Not Resolved]
